FAERS Safety Report 9926847 (Version 1)
Quarter: 2014Q1

REPORT INFORMATION
  Report Type: Spontaneous
  Country: US (occurrence: US)
  Receive Date: 20140226
  Receipt Date: 20140226
  Transmission Date: 20141002
  Serious: No
  Sender: FDA-Public Use
  Company Number: US-AMGEN-USASP2013081461

PATIENT
  Age: 66 Year
  Sex: Female
  Weight: 113.3 kg

DRUGS (19)
  1. ENBREL [Suspect]
     Indication: PRODUCT USED FOR UNKNOWN INDICATION
     Dosage: 50 MG, QWK
     Route: 058
  2. METHOTREXATE [Concomitant]
     Dosage: 2.5 MG, UNK
  3. PLAVIX [Concomitant]
     Dosage: 75 MG, UNK
  4. VITAMIN D                          /00107901/ [Concomitant]
     Dosage: 1000 UNIT, UNK
  5. FOLIC ACID [Concomitant]
     Dosage: UNK
  6. GABAPENTIN [Concomitant]
     Dosage: 100 MG, UNK
  7. LISINOPRIL [Concomitant]
     Dosage: 10 MG, UNK
  8. MECLIZINE                          /00072801/ [Concomitant]
     Dosage: 25 MG, UNK
  9. PREMARIN [Concomitant]
     Dosage: 0.3 MG, UNK
  10. TRAMADOL HCL [Concomitant]
     Dosage: 50 MG, UNK
  11. LEXAPRO [Concomitant]
     Dosage: 10 MG, UNK
  12. CARVEDILOL [Concomitant]
     Dosage: 12.5 MG, UNK
  13. OSTEO BI-FLEX                      /01431201/ [Concomitant]
     Dosage: 250-200
  14. VITAMIN E                          /00110501/ [Concomitant]
     Dosage: 1000 UNIT, UNK
  15. ECOTRIN [Concomitant]
     Dosage: 325 MG, UNK
  16. NEXIUM                             /01479302/ [Concomitant]
     Dosage: 20 MG, UNK
  17. B COMPLEX                          /06817001/ [Concomitant]
     Dosage: UNK
  18. CENTRUM SILVER ADULTS 50+ [Concomitant]
     Dosage: UNK
  19. CLONIDINE [Concomitant]
     Dosage: 0.1 MG, UNK

REACTIONS (1)
  - Injection site bruising [Unknown]
